FAERS Safety Report 18589145 (Version 6)
Quarter: 2021Q2

REPORT INFORMATION
  Report Type: Report from Study
  Country: US (occurrence: US)
  Receive Date: 20201208
  Receipt Date: 20210614
  Transmission Date: 20210717
  Serious: Yes (Hospitalization, Other)
  Sender: FDA-Public Use
  Company Number: US-ROCHE-2727731

PATIENT
  Age: 70 Year
  Sex: Female
  Weight: 103.5 kg

DRUGS (14)
  1. VENETOCLAX. [Suspect]
     Active Substance: VENETOCLAX
     Dosage: ON DAYS 8?14, CYCLE 3
     Route: 048
     Dates: start: 20201012, end: 20201018
  2. VENETOCLAX. [Suspect]
     Active Substance: VENETOCLAX
     Dosage: LAST ADMINISTERED DATE: 08/JAN/2021?TOTAL DOSE ADMINISTERED THIS COURSE: 3600 MG
     Route: 048
     Dates: start: 20200813
  3. OBINUTUZUMAB. [Suspect]
     Active Substance: OBINUTUZUMAB
     Indication: CHRONIC LYMPHOCYTIC LEUKAEMIA
     Dosage: ON DAY 1 OF CYCLE 1
     Route: 042
     Dates: start: 20200813, end: 20200813
  4. IBRUTINIB [Suspect]
     Active Substance: IBRUTINIB
     Indication: CHRONIC LYMPHOCYTIC LEUKAEMIA
     Dosage: DATE OF LAST DOSE OF IBRUTINIB ADMINISTERED: 18/NOV/2020?TOTAL DOSE ADMINISTERED THIS COURSE (DOSE):
     Route: 048
     Dates: start: 20200813, end: 20201211
  5. VENETOCLAX. [Suspect]
     Active Substance: VENETOCLAX
     Dosage: ON DAYS 15? 21, CYCLE 3
     Route: 048
     Dates: start: 20201019, end: 20201025
  6. VENETOCLAX. [Suspect]
     Active Substance: VENETOCLAX
     Dosage: ON DAYS 1?28, CYCLES 4?14?DATE OF LAST DOSE OF VENETOCLAX ADMINISTERED: 18/NOV/2020
     Route: 048
     Dates: start: 20201102
  7. OBINUTUZUMAB. [Suspect]
     Active Substance: OBINUTUZUMAB
     Dosage: ON DAY 2 OF CYCLE 1
     Route: 042
     Dates: start: 20200811, end: 20200811
  8. IBRUTINIB [Suspect]
     Active Substance: IBRUTINIB
     Dosage: LAST ADMINISTERED DATE: 11/DEC/2020
     Route: 048
     Dates: start: 20201203, end: 20201211
  9. OBINUTUZUMAB. [Suspect]
     Active Substance: OBINUTUZUMAB
     Route: 042
     Dates: start: 20200817, end: 20200817
  10. OBINUTUZUMAB. [Suspect]
     Active Substance: OBINUTUZUMAB
     Route: 042
     Dates: start: 20200824, end: 20200824
  11. OBINUTUZUMAB. [Suspect]
     Active Substance: OBINUTUZUMAB
     Dosage: DATE OF LAST DOSE OF OBINUTUZUMAB ADMINISTERED: 03/DEC/2020 (0 MG)
     Route: 042
     Dates: start: 20200907
  12. VENETOCLAX. [Suspect]
     Active Substance: VENETOCLAX
     Dosage: ON DAYS 22?28, CYCLE 3
     Route: 048
     Dates: start: 20201026, end: 20201101
  13. VENETOCLAX. [Suspect]
     Active Substance: VENETOCLAX
     Dosage: LAST ADMINISTERED DATE: 11/DEC/2020
     Route: 048
     Dates: start: 20201203, end: 20201211
  14. VENETOCLAX. [Suspect]
     Active Substance: VENETOCLAX
     Indication: CHRONIC LYMPHOCYTIC LEUKAEMIA
     Dosage: ON  DAYS 1?7 CYCLE 3
     Route: 048
     Dates: start: 20201005, end: 20201011

REACTIONS (4)
  - Hypokalaemia [Recovered/Resolved]
  - Urinary tract infection [Not Recovered/Not Resolved]
  - Nephrolithiasis [Recovered/Resolved]
  - Pseudomonas infection [Recovered/Resolved]

NARRATIVE: CASE EVENT DATE: 20201119
